FAERS Safety Report 10729381 (Version 5)
Quarter: 2015Q1

REPORT INFORMATION
  Report Type: Spontaneous
  Country: US (occurrence: US)
  Receive Date: 20150122
  Receipt Date: 20150302
  Transmission Date: 20150721
  Serious: Yes (Hospitalization, Other)
  Sender: FDA-Public Use
  Company Number: US-PFIZER INC-2015024221

PATIENT
  Age: 69 Year
  Sex: Female

DRUGS (13)
  1. ALPRAZOLAM. [Concomitant]
     Active Substance: ALPRAZOLAM
  2. ASPIRIN. [Concomitant]
     Active Substance: ASPIRIN
  3. WARFARIN [Concomitant]
     Active Substance: WARFARIN
  4. PREDNISOLONE. [Concomitant]
     Active Substance: PREDNISOLONE
  5. METOPROLOL SUCCINATE. [Concomitant]
     Active Substance: METOPROLOL SUCCINATE
  6. CITALOPRAM [Concomitant]
     Active Substance: CITALOPRAM HYDROBROMIDE
  7. AMIODARONE HCL [Suspect]
     Active Substance: AMIODARONE HYDROCHLORIDE
     Indication: ATRIAL FIBRILLATION
     Dosage: 200 MG, DAILY
     Route: 065
  8. MIDODRINE [Concomitant]
     Active Substance: MIDODRINE
  9. OXYCODONE-ACETAMINOPHEN [Concomitant]
     Active Substance: ACETAMINOPHEN\OXYCODONE HYDROCHLORIDE
  10. LIDODERM [Concomitant]
     Active Substance: LIDOCAINE
  11. GABAPENTIN. [Concomitant]
     Active Substance: GABAPENTIN
  12. FLUTICASONE [Concomitant]
     Active Substance: FLUTICASONE\FLUTICASONE PROPIONATE
  13. LORATADINE. [Concomitant]
     Active Substance: LORATADINE

REACTIONS (5)
  - Cardiomegaly [Unknown]
  - Respiratory acidosis [Unknown]
  - Myxoedema coma [Unknown]
  - Anaemia macrocytic [Unknown]
  - Hyperkalaemia [Unknown]
